FAERS Safety Report 4735574-4 (Version None)
Quarter: 2005Q3

REPORT INFORMATION
  Report Type: 
  Country: None (occurrence: None)
  Receive Date: 20050803
  Receipt Date: 20050726
  Transmission Date: 20060218
  Serious: No
  Sender: FDA-Public Use
  Company Number: TAP2005Q01263

PATIENT
  Age: 88 Year
  Sex: Female
  Weight: 68.0396 kg

DRUGS (4)
  1. NAPRAPAC 375 (COPACKAGED) [Suspect]
     Indication: NAUSEA
     Dosage: 1 CARD, 1 IN 1 WK, ORAL
     Route: 048
     Dates: start: 20040701, end: 20050720
  2. BENICAR [Concomitant]
  3. TRIAMZIDE (DYAZIDE) [Concomitant]
  4. IRON (IRON) [Concomitant]

REACTIONS (4)
  - DIPLOPIA [None]
  - NAUSEA [None]
  - VISION BLURRED [None]
  - VISUAL DISTURBANCE [None]
